FAERS Safety Report 6790595-5 (Version None)
Quarter: 2010Q2

REPORT INFORMATION
  Report Type: 
  Country: None (occurrence: None)
  Receive Date: 20100624
  Receipt Date: 20100609
  Transmission Date: 20101027
  Serious: Yes (Hospitalization)
  Sender: FDA-Public Use
  Company Number: PHHY2010VE38166

PATIENT
  Sex: Female

DRUGS (3)
  1. ZOMETA [Suspect]
     Dosage: 4MG EACH 6 MONTHS
  2. FEMARA [Suspect]
     Dosage: UNK
     Dates: start: 20070801, end: 20091201
  3. LETROZOLE [Concomitant]
     Dosage: UNK
     Dates: start: 20091201

REACTIONS (3)
  - DECREASED APPETITE [None]
  - DEHYDRATION [None]
  - INSOMNIA [None]
